FAERS Safety Report 7125402-4 (Version None)
Quarter: 2010Q4

REPORT INFORMATION
  Report Type: 
  Country: None (occurrence: None)
  Receive Date: 20101129
  Receipt Date: 20101116
  Transmission Date: 20110411
  Serious: Yes (Other)
  Sender: FDA-Public Use
  Company Number: FR-JNJFOC-20101105302

PATIENT
  Age: 3 Year
  Sex: Male
  Weight: 17.4 kg

DRUGS (3)
  1. IMODIUM [Suspect]
     Route: 048
  2. IMODIUM [Suspect]
     Indication: DIARRHOEA
     Route: 048
  3. DOLIPRANE [Suspect]
     Indication: PYREXIA
     Route: 054

REACTIONS (2)
  - BODY TEMPERATURE INCREASED [None]
  - URTICARIA [None]
